FAERS Safety Report 22844532 (Version 3)
Quarter: 2023Q4

REPORT INFORMATION
  Report Type: Report from Study
  Country: US (occurrence: US)
  Receive Date: 20230821
  Receipt Date: 20231031
  Transmission Date: 20240110
  Serious: Yes (Other)
  Sender: FDA-Public Use
  Company Number: US-OTSUKA-2023_000207

PATIENT
  Age: 68 Year
  Sex: Female
  Weight: 59.87 kg

DRUGS (3)
  1. TOLVAPTAN [Suspect]
     Active Substance: TOLVAPTAN
     Indication: Congenital cystic kidney disease
     Dosage: 30 MG, QD (IN THE MORNING)
     Route: 065
     Dates: start: 20221216, end: 20230616
  2. TOLVAPTAN [Suspect]
     Active Substance: TOLVAPTAN
     Indication: Congenital cystic kidney disease
     Dosage: 15 MG, QD (8 H LATER)
     Route: 065
     Dates: start: 20221216, end: 20230616
  3. TOLVAPTAN [Suspect]
     Active Substance: TOLVAPTAN
     Dosage: UNK
     Route: 065
     Dates: start: 20230809

REACTIONS (9)
  - Chest pain [Recovered/Resolved]
  - Dyspnoea [Recovered/Resolved]
  - Pruritus [Recovered/Resolved]
  - Adverse drug reaction [Unknown]
  - Renal pain [Not Recovered/Not Resolved]
  - Polydipsia [Not Recovered/Not Resolved]
  - Fatigue [Unknown]
  - Pollakiuria [Not Recovered/Not Resolved]
  - Underdose [Unknown]

NARRATIVE: CASE EVENT DATE: 20221216
